FAERS Safety Report 13189310 (Version 1)
Quarter: 2017Q1

REPORT INFORMATION
  Report Type: Report from Study
  Country: US (occurrence: US)
  Receive Date: 20170206
  Receipt Date: 20170206
  Transmission Date: 20170428
  Serious: Yes (Hospitalization, Other)
  Sender: FDA-Public Use
  Company Number: US-MALLINCKRODT-T201700222

PATIENT
  Age: 80 Year
  Sex: Male
  Weight: 132 kg

DRUGS (24)
  1. LORCASERIN (BLINDED) [Suspect]
     Active Substance: LORCASERIN HYDROCHLORIDE
     Dosage: UNK, 2 IN 1 D
     Route: 048
     Dates: start: 20161106
  2. SIMVASTATIN. [Concomitant]
     Active Substance: SIMVASTATIN
     Dosage: UNK
     Route: 048
     Dates: start: 2009
  3. TIZANIDINE. [Concomitant]
     Active Substance: TIZANIDINE
     Dosage: UNK
     Route: 048
     Dates: start: 201410
  4. CLOBETASOL [Concomitant]
     Active Substance: CLOBETASOL
     Dosage: UNK
     Route: 061
     Dates: start: 1975
  5. OXYCODONE [Suspect]
     Active Substance: OXYCODONE
     Indication: SPINAL COLUMN STENOSIS
     Dosage: 15 MG, BID (DAILY DOSE 30 MG)
     Route: 048
     Dates: start: 2011
  6. ALLOPURINOL. [Concomitant]
     Active Substance: ALLOPURINOL
     Dosage: UNK
     Route: 048
     Dates: start: 2006
  7. CALCIUM [Concomitant]
     Active Substance: CALCIUM
     Dosage: UNK
     Route: 048
     Dates: start: 2012
  8. COLCRYS [Concomitant]
     Active Substance: COLCHICINE
     Dosage: UNK
     Route: 048
     Dates: start: 2012
  9. GLIMEPIRIDE. [Concomitant]
     Active Substance: GLIMEPIRIDE
     Dosage: UNK
     Route: 048
     Dates: start: 2009
  10. METOPROLOL SUCCINATE. [Concomitant]
     Active Substance: METOPROLOL SUCCINATE
     Dosage: UNK
     Route: 048
     Dates: start: 2009
  11. LORCASERIN (BLINDED) [Suspect]
     Active Substance: LORCASERIN HYDROCHLORIDE
     Indication: WEIGHT CONTROL
     Dosage: UNK, 2 IN 1 D
     Route: 048
     Dates: start: 20141118, end: 20150730
  12. LORCASERIN (BLINDED) [Suspect]
     Active Substance: LORCASERIN HYDROCHLORIDE
     Dosage: UNK, 2 IN 1 D
     Route: 048
     Dates: start: 20151015, end: 20151023
  13. LORCASERIN (BLINDED) [Suspect]
     Active Substance: LORCASERIN HYDROCHLORIDE
     Dosage: UNK, 2 IN 1 D
     Route: 048
     Dates: start: 20151228, end: 20160204
  14. OMEGA 3 [Concomitant]
     Active Substance: OMEGA-3 FATTY ACIDS
     Dosage: UNK
     Route: 048
     Dates: start: 2012
  15. VITAMIN D3 [Concomitant]
     Active Substance: CHOLECALCIFEROL
     Dosage: UNK
     Route: 048
     Dates: start: 2012
  16. LORCASERIN (BLINDED) [Suspect]
     Active Substance: LORCASERIN HYDROCHLORIDE
     Dosage: UNK, 2 IN 1 D
     Route: 048
     Dates: start: 20160604, end: 20161102
  17. GABAPENTIN. [Concomitant]
     Active Substance: GABAPENTIN
     Dosage: UNK
     Route: 048
     Dates: start: 20150206
  18. FOLIC ACID. [Concomitant]
     Active Substance: FOLIC ACID
     Dosage: UNK
     Route: 048
     Dates: start: 2012
  19. LORCASERIN (BLINDED) [Suspect]
     Active Substance: LORCASERIN HYDROCHLORIDE
     Dosage: UNK, 2 IN 1 D
     Route: 048
     Dates: start: 20151002, end: 20151008
  20. LORCASERIN (BLINDED) [Suspect]
     Active Substance: LORCASERIN HYDROCHLORIDE
     Dosage: UNK, 2 IN 1 D
     Route: 048
     Dates: start: 20151113, end: 20151220
  21. WARFARIN [Concomitant]
     Active Substance: WARFARIN
     Dosage: UNK
     Route: 048
     Dates: start: 1996
  22. LORCASERIN (BLINDED) [Suspect]
     Active Substance: LORCASERIN HYDROCHLORIDE
     Dosage: UNK, 2 IN 1 D
     Route: 048
     Dates: start: 20150815, end: 20150927
  23. LORCASERIN (BLINDED) [Suspect]
     Active Substance: LORCASERIN HYDROCHLORIDE
     Dosage: UNK, 2 IN 1 D
     Route: 048
     Dates: start: 20160210, end: 20160531
  24. ASPIRIN. [Concomitant]
     Active Substance: ASPIRIN
     Dosage: UNK
     Route: 048
     Dates: start: 2010

REACTIONS (9)
  - Constipation [Not Recovered/Not Resolved]
  - Sepsis [Recovered/Resolved]
  - Haemorrhage urinary tract [Recovered/Resolved]
  - Rheumatoid arthritis [Recovered/Resolved]
  - Cystitis radiation [Recovered/Resolved]
  - Small intestinal obstruction [Recovered/Resolved]
  - Mitral valve incompetence [Not Recovered/Not Resolved]
  - Intentional product misuse [Unknown]
  - Bacteraemia [Recovered/Resolved]

NARRATIVE: CASE EVENT DATE: 20150403
